FAERS Safety Report 6709611-1 (Version None)
Quarter: 2010Q2

REPORT INFORMATION
  Report Type: 
  Country: None (occurrence: None)
  Receive Date: 20100503
  Receipt Date: 20100503
  Transmission Date: 20101027
  Serious: No
  Sender: FDA-Public Use
  Company Number: None

PATIENT
  Age: 16 Month
  Sex: Female
  Weight: 11.1131 kg

DRUGS (3)
  1. ZYRTEC [Suspect]
     Indication: LACRIMATION INCREASED
     Dosage: 1/4 TEASPOON ONCE A DAY PO
     Route: 048
     Dates: start: 20100417, end: 20100417
  2. ZYRTEC [Suspect]
     Indication: MULTIPLE ALLERGIES
     Dosage: 1/4 TEASPOON ONCE A DAY PO
     Route: 048
     Dates: start: 20100417, end: 20100417
  3. ZYRTEC [Suspect]
     Indication: RHINORRHOEA
     Dosage: 1/4 TEASPOON ONCE A DAY PO
     Route: 048
     Dates: start: 20100417, end: 20100417

REACTIONS (5)
  - BALANCE DISORDER [None]
  - DIZZINESS [None]
  - EYELID FUNCTION DISORDER [None]
  - OVERDOSE [None]
  - UNRESPONSIVE TO STIMULI [None]
